FAERS Safety Report 15181453 (Version 2)
Quarter: 2018Q3

REPORT INFORMATION
  Report Type: Report from Study
  Country: US (occurrence: US)
  Receive Date: 20180723
  Receipt Date: 20180803
  Transmission Date: 20181010
  Serious: No
  Sender: FDA-Public Use
  Company Number: US-SA-2018SA196228

PATIENT
  Age: 53 Year
  Sex: Female

DRUGS (4)
  1. SARILUMAB [Suspect]
     Active Substance: SARILUMAB
     Dosage: 200 MG, QOW
     Route: 058
     Dates: start: 201804
  2. ENBREL [Concomitant]
     Active Substance: ETANERCEPT
     Dosage: UNK UNK, QW
  3. PROLIA [Concomitant]
     Active Substance: DENOSUMAB
  4. HUMIRA [Concomitant]
     Active Substance: ADALIMUMAB

REACTIONS (8)
  - Eyelid oedema [Not Recovered/Not Resolved]
  - Blepharitis [Unknown]
  - Injection site pruritus [Unknown]
  - Gastrointestinal pain [Unknown]
  - Nasal congestion [Not Recovered/Not Resolved]
  - Nasal discomfort [Not Recovered/Not Resolved]
  - Rhinorrhoea [Not Recovered/Not Resolved]
  - Injection site swelling [Unknown]

NARRATIVE: CASE EVENT DATE: 2018
